FAERS Safety Report 6939505-8 (Version None)
Quarter: 2010Q3

REPORT INFORMATION
  Report Type: 
  Country: None (occurrence: None)
  Receive Date: 20100819
  Receipt Date: 20100805
  Transmission Date: 20110219
  Serious: Yes (Hospitalization, Disabling)
  Sender: FDA-Public Use
  Company Number: 2010PI000213

PATIENT
  Age: 57 Year
  Sex: Male

DRUGS (6)
  1. FENTANYL [Suspect]
     Indication: PROCEDURAL PAIN
     Dosage: 2 UG;ML;ED
     Route: 008
  2. LEVOBUPIVACAINE (NO PREF. NAME) [Suspect]
     Indication: PROCEDURAL PAIN
     Dosage: 10 AND 7 ML;ED
     Route: 008
  3. RAMIPRIL [Concomitant]
  4. DICLOFENAC [Concomitant]
  5. STATIN (UNSPECIFIED) [Concomitant]
  6. PREV MEDS [Concomitant]

REACTIONS (4)
  - ANAESTHETIC COMPLICATION [None]
  - ASTHENIA [None]
  - HYPOAESTHESIA [None]
  - PARALYSIS [None]
